FAERS Safety Report 18298465 (Version 1)
Quarter: 2020Q3

REPORT INFORMATION
  Report Type: Spontaneous
  Country: US (occurrence: US)
  Receive Date: 20200922
  Receipt Date: 20200922
  Transmission Date: 20201103
  Serious: Yes (Other)
  Sender: FDA-Public Use
  Company Number: US-ASTRAZENECA-2020SF20346

PATIENT
  Age: 35 Year
  Sex: Male

DRUGS (11)
  1. LATUDA [Suspect]
     Active Substance: LURASIDONE HYDROCHLORIDE
     Indication: BIPOLAR DISORDER
     Dosage: 20.0MG UNKNOWN
     Route: 048
     Dates: start: 20191114, end: 20200318
  2. SEROQUEL [Suspect]
     Active Substance: QUETIAPINE FUMARATE
     Dosage: 100.0MG UNKNOWN
     Route: 048
  3. WELLBUTRIN [Concomitant]
     Active Substance: BUPROPION HYDROCHLORIDE
     Dosage: 100 MG FOR COUNT OF 30 TABLETS
  4. LATUDA [Suspect]
     Active Substance: LURASIDONE HYDROCHLORIDE
     Indication: BIPOLAR DISORDER
     Dosage: 40.0MG UNKNOWN
     Route: 048
     Dates: start: 20200507
  5. HYDROCODONE [Concomitant]
     Active Substance: HYDROCODONE
     Dosage: 5/325 EVERY 4?6 HOURS
     Dates: start: 201910
  6. METOPROLOL TARTARATE [Suspect]
     Active Substance: METOPROLOL TARTRATE
     Dosage: 12.5MG UNKNOWN
     Route: 065
     Dates: start: 201910
  7. LATUDA [Suspect]
     Active Substance: LURASIDONE HYDROCHLORIDE
     Indication: BIPOLAR DISORDER
     Dosage: 20.0MG UNKNOWN
     Route: 048
     Dates: start: 20190220, end: 201910
  8. WELLBUTRIN [Concomitant]
     Active Substance: BUPROPION HYDROCHLORIDE
     Dosage: 100 MG TABLET DAILY 90 COUNT
     Dates: start: 20190416
  9. AMIODARONE [Concomitant]
     Active Substance: AMIODARONE
     Dates: start: 201910
  10. HYDROXYZINE [Concomitant]
     Active Substance: HYDROXYZINE HYDROCHLORIDE
     Dates: start: 20190507
  11. SEROQUEL [Suspect]
     Active Substance: QUETIAPINE FUMARATE
     Dosage: 100.0MG UNKNOWN
     Route: 048
     Dates: start: 20190507

REACTIONS (14)
  - Aortic aneurysm [Unknown]
  - Mood swings [Unknown]
  - Anxiety [Unknown]
  - Mood altered [Unknown]
  - Tachyphrenia [Unknown]
  - Affect lability [Unknown]
  - Sedation [Unknown]
  - Nightmare [Unknown]
  - Agitation [Unknown]
  - Irritability [Unknown]
  - Depression [Unknown]
  - Stress [Unknown]
  - Insomnia [Unknown]
  - Emotional distress [Unknown]
